FAERS Safety Report 15625084 (Version 4)
Quarter: 2019Q4

REPORT INFORMATION
  Report Type: Report from Study
  Country: JP (occurrence: JP)
  Receive Date: 20181116
  Receipt Date: 20191226
  Transmission Date: 20200122
  Serious: Yes (Hospitalization, Other)
  Sender: FDA-Public Use
  Company Number: PHJP2018JP019055

PATIENT
  Age: 78 Year
  Sex: Male

DRUGS (39)
  1. NEORAL [Suspect]
     Active Substance: CYCLOSPORINE
     Indication: APLASTIC ANAEMIA
     Dosage: 250 MG
     Route: 048
     Dates: start: 20181017, end: 20181109
  2. PREDONINE [Suspect]
     Active Substance: PREDNISOLONE
     Indication: APLASTIC ANAEMIA
     Dosage: 25 MG
     Route: 048
     Dates: start: 20181031, end: 20181106
  3. MECOBALAMIN [Concomitant]
     Active Substance: METHYLCOBALAMIN
     Indication: LUMBAR SPINAL STENOSIS
     Dosage: 1500 UG
     Route: 048
     Dates: start: 20180829, end: 20180903
  4. TRAMCET [Concomitant]
     Active Substance: ACETAMINOPHEN\TRAMADOL
     Indication: LUMBAR SPINAL STENOSIS
     Dosage: 2 DF
     Route: 048
     Dates: start: 20180829, end: 20190108
  5. POLARAMINE [Concomitant]
     Active Substance: DEXCHLORPHENIRAMINE MALEATE
     Indication: ALLERGY PROPHYLAXIS
     Dosage: 5 MG
     Route: 058
     Dates: start: 20180830, end: 20190521
  6. PREDNISOLON//PREDNISOLONE SODIUM SUCCINATE [Concomitant]
     Indication: APLASTIC ANAEMIA
     Dosage: 50 MG
     Route: 058
     Dates: start: 20181022, end: 20181030
  7. REVOLADE TAB [Suspect]
     Active Substance: ELTROMBOPAG
     Indication: APLASTIC ANAEMIA
     Dosage: 75 MG
     Route: 048
     Dates: start: 20181030, end: 20181115
  8. METHYCOBAL [Concomitant]
     Active Substance: METHYLCOBALAMIN
     Indication: SPONDYLOLISTHESIS
  9. DAIPHEN [Concomitant]
     Active Substance: SULFAMETHOXAZOLE\TRIMETHOPRIM
     Indication: PNEUMOCYSTIS JIROVECII PNEUMONIA
     Dosage: 1 DF
     Route: 048
     Dates: start: 20181017, end: 20191015
  10. LOXOPROFEN [Concomitant]
     Active Substance: LOXOPROFEN
     Indication: SPONDYLOLISTHESIS
  11. THYMOGLOBULINE [Concomitant]
     Active Substance: LAPINE T-LYMPHOCYTE IMMUNE GLOBULIN
     Indication: APLASTIC ANAEMIA
     Dosage: 200 MG
     Route: 058
     Dates: start: 20181017, end: 20181021
  12. TAKECAB [Concomitant]
     Active Substance: VONOPRAZAN FUMURATE
     Indication: PROPHYLAXIS AGAINST GASTROINTESTINAL ULCER
     Dosage: 20 MG
     Route: 048
     Dates: start: 20181116, end: 20181115
  13. REVOLADE TAB [Suspect]
     Active Substance: ELTROMBOPAG
     Dosage: 75 MG
     Route: 048
     Dates: start: 20181219, end: 20191112
  14. LYRICA [Concomitant]
     Active Substance: PREGABALIN
     Indication: SPONDYLOLISTHESIS
     Dosage: 75 MG, BID
     Route: 048
     Dates: start: 20181113
  15. METHYCOBAL [Concomitant]
     Active Substance: METHYLCOBALAMIN
     Indication: LUMBAR SPINAL STENOSIS
     Dosage: 500 UG
     Route: 058
     Dates: start: 20180904, end: 20180920
  16. CALONAL [Concomitant]
     Active Substance: ACETAMINOPHEN
     Indication: APLASTIC ANAEMIA
     Dosage: 400 MG
     Route: 048
     Dates: start: 20181017, end: 20181021
  17. LIMAPROST ALFADEX [Concomitant]
     Active Substance: LIMAPROST
     Indication: LUMBAR SPINAL STENOSIS
     Dosage: 15 UG
     Route: 048
     Dates: start: 20180807
  18. DESFERAL [Concomitant]
     Active Substance: DEFEROXAMINE MESYLATE
     Indication: HAEMOCHROMATOSIS
     Dosage: 500 MG
     Route: 058
     Dates: start: 20180829, end: 20190111
  19. LIMAPROST ALFADEX [Concomitant]
     Active Substance: LIMAPROST
     Indication: SPONDYLOLISTHESIS
  20. LOXOPROFEN [Concomitant]
     Active Substance: LOXOPROFEN
     Indication: LUMBAR SPINAL STENOSIS
     Dosage: 120 MG
     Route: 048
     Dates: start: 20190313, end: 20190320
  21. CATLEP [Concomitant]
     Active Substance: INDOMETHACIN
     Indication: LUMBAR SPINAL STENOSIS
     Dosage: 1 DF
     Route: 062
     Dates: start: 20181111, end: 20181115
  22. CONCENTRATED RED CELLS [Concomitant]
     Active Substance: HUMAN RED BLOOD CELL
     Indication: APLASTIC ANAEMIA
     Dosage: 280 ML
     Route: 016
     Dates: start: 20180904, end: 20190121
  23. NEORAL [Suspect]
     Active Substance: CYCLOSPORINE
     Dosage: 300 MG
     Route: 048
     Dates: start: 20181110, end: 20181115
  24. DOMPERIDONE [Suspect]
     Active Substance: DOMPERIDONE
     Indication: NAUSEA
     Dosage: 20 MG
     Route: 048
     Dates: start: 20180829, end: 20181225
  25. LYRICA [Concomitant]
     Active Substance: PREGABALIN
     Indication: PERIPHERAL SENSORY NEUROPATHY
     Dosage: UNK
     Route: 065
  26. CELECOX [Concomitant]
     Active Substance: CELECOXIB
     Indication: PRODUCT USED FOR UNKNOWN INDICATION
     Dosage: UNK
     Route: 065
  27. ZOVIRAX [Concomitant]
     Active Substance: ACYCLOVIR
     Indication: HERPES ZOSTER
     Dosage: 200 MG
     Route: 048
     Dates: start: 20181017, end: 20190108
  28. SOLU-MEDROL [Concomitant]
     Active Substance: METHYLPREDNISOLONE SODIUM SUCCINATE
     Indication: APLASTIC ANAEMIA
     Dosage: 125 MG
     Route: 058
     Dates: start: 20181017, end: 20181021
  29. CATLEP [Concomitant]
     Active Substance: INDOMETHACIN
     Indication: SPONDYLOLISTHESIS
  30. REVOLADE TAB [Suspect]
     Active Substance: ELTROMBOPAG
     Dosage: 50 MG
     Route: 048
     Dates: start: 20181116, end: 20181218
  31. PREDONINE [Suspect]
     Active Substance: PREDNISOLONE
     Dosage: 10 MG
     Route: 048
     Dates: start: 20181107, end: 20181113
  32. MECOBALAMIN [Concomitant]
     Active Substance: METHYLCOBALAMIN
     Indication: SPONDYLOLISTHESIS
     Dosage: 1500 UG
     Route: 048
     Dates: start: 20181107
  33. RESTAMIN [Concomitant]
     Active Substance: DIPHENHYDRAMINE
     Indication: APLASTIC ANAEMIA
     Dosage: 30 MG
     Route: 048
     Dates: start: 20181017, end: 20181021
  34. PLATELETS [Concomitant]
     Active Substance: HUMAN PLATELET, ALLOGENIC
     Indication: APLASTIC ANAEMIA
     Dosage: 200 ML
     Route: 065
     Dates: start: 20180904, end: 20190610
  35. REVOLADE TAB [Suspect]
     Active Substance: ELTROMBOPAG
     Dosage: 50 MG
     Route: 048
     Dates: start: 20191113, end: 20191211
  36. NEORAL [Suspect]
     Active Substance: CYCLOSPORINE
     Dosage: 250 MG
     Route: 048
     Dates: start: 20181116, end: 20181129
  37. LYRICA [Concomitant]
     Active Substance: PREGABALIN
     Indication: LUMBAR SPINAL STENOSIS
     Dosage: 25MG IN THE MORNING/75MG IN THE EVENING, BID
     Route: 048
     Dates: start: 20180829, end: 20181112
  38. TRAMCET [Concomitant]
     Active Substance: ACETAMINOPHEN\TRAMADOL
     Indication: SPONDYLOLISTHESIS
     Dosage: 4 DF
     Route: 048
     Dates: start: 20190108
  39. LANSOPRAZOLE. [Concomitant]
     Active Substance: LANSOPRAZOLE
     Indication: PROPHYLAXIS AGAINST GASTROINTESTINAL ULCER
     Dosage: 30 MG
     Route: 048
     Dates: start: 20181116

REACTIONS (11)
  - Febrile neutropenia [Recovered/Resolved]
  - Peripheral sensory neuropathy [Recovered/Resolved]
  - Decreased appetite [Recovered/Resolved]
  - Tremor [Recovered/Resolved]
  - Neuropathy peripheral [Unknown]
  - Constipation [Recovered/Resolved]
  - Hyperkalaemia [Recovered/Resolved]
  - Hyperglycaemia [Recovering/Resolving]
  - Upper respiratory tract infection [Recovered/Resolved]
  - Febrile neutropenia [Recovered/Resolved]
  - White blood cell count decreased [Unknown]

NARRATIVE: CASE EVENT DATE: 20181102
